FAERS Safety Report 7622772-5 (Version None)
Quarter: 2011Q3

REPORT INFORMATION
  Report Type: 
  Country: None (occurrence: None)
  Receive Date: 20110719
  Receipt Date: 20110719
  Transmission Date: 20111222
  Serious: Yes (Hospitalization)
  Sender: FDA-Public Use
  Company Number: None

PATIENT
  Age: 63 Year
  Sex: Male
  Weight: 97.5234 kg

DRUGS (1)
  1. NUCYNTA [Suspect]
     Indication: PROCEDURAL PAIN
     Dosage: 50 MG Q 6? PRN PO
     Route: 048
     Dates: start: 20110615

REACTIONS (12)
  - BALANCE DISORDER [None]
  - ABNORMAL BEHAVIOUR [None]
  - HALLUCINATION [None]
  - DISORIENTATION [None]
  - AGGRESSION [None]
  - DYSARTHRIA [None]
  - SEROTONIN SYNDROME [None]
  - HYPERHIDROSIS [None]
  - PYREXIA [None]
  - RESTLESSNESS [None]
  - CONFUSIONAL STATE [None]
  - AGITATION [None]
